FAERS Safety Report 7311164-4 (Version None)
Quarter: 2011Q1

REPORT INFORMATION
  Report Type: 
  Country: None (occurrence: None)
  Receive Date: 20110119
  Receipt Date: 20100922
  Transmission Date: 20110831
  Serious: Yes (Other)
  Sender: FDA-Public Use
  Company Number: A-NJ2010-40002

PATIENT
  Age: 50 Year
  Sex: Female

DRUGS (3)
  1. LISINOPRIL [Concomitant]
  2. TRACLEER [Suspect]
     Indication: PULMONARY ARTERIAL HYPERTENSION
     Dosage: 62.5 MG, BID, ORAL
     Route: 048
     Dates: start: 20100907
  3. COUMADIN [Concomitant]

REACTIONS (4)
  - FATIGUE [None]
  - NAUSEA [None]
  - HYPOTENSION [None]
  - VISION BLURRED [None]
